FAERS Safety Report 18081715 (Version 1)
Quarter: 2020Q3

REPORT INFORMATION
  Report Type: Spontaneous
  Country: CN (occurrence: CN)
  Receive Date: 20200728
  Receipt Date: 20200728
  Transmission Date: 20201103
  Serious: Yes (Other)
  Sender: FDA-Public Use
  Company Number: CN-PFIZER INC-2020282406

PATIENT
  Age: 50 Year
  Sex: Male
  Weight: 71 kg

DRUGS (8)
  1. ANKADA [BEVACIZUMAB] [Suspect]
     Active Substance: BEVACIZUMAB
     Indication: TARGETED CANCER THERAPY
     Dosage: 300.000 MG, 1X/DAY
     Route: 041
     Dates: start: 20200619, end: 20200619
  2. SODIUM CHLORIDE. [Concomitant]
     Active Substance: SODIUM CHLORIDE
     Indication: VEHICLE SOLUTION USE
     Dosage: 250.000 ML, ALTERNATE DAY
     Dates: start: 20200619, end: 20200621
  3. OMEPRAZOLE SODIUM [Concomitant]
     Active Substance: OMEPRAZOLE SODIUM
     Indication: PROPHYLAXIS
     Dosage: 40 MG, 2X/DAY
     Route: 041
  4. CAMPTO [Suspect]
     Active Substance: IRINOTECAN
     Indication: CHEMOTHERAPY
     Dosage: 300.000 MG, 1X/DAY
     Route: 041
     Dates: start: 20200619, end: 20200619
  5. FLUOROURACIL. [Suspect]
     Active Substance: FLUOROURACIL
     Indication: CHEMOTHERAPY
     Dosage: 750 MG, SINGLE (IV BOLUS ONCE)
     Route: 040
     Dates: start: 20200619, end: 20200619
  6. TONG AO [Suspect]
     Active Substance: LEUCOVORIN CALCIUM
     Indication: CHEMOTHERAPY
     Dosage: 700.000 MG, 1X/DAY
     Route: 041
     Dates: start: 20200619, end: 20200619
  7. FLUOROURACIL. [Suspect]
     Active Substance: FLUOROURACIL
     Dosage: 3750.000 MG, ALTERNATE DAY (CHEMOTHERAPY PUMP PUMPED 46H FOR PALLIATIVE TREATMENT)
     Dates: start: 20200619, end: 20200621
  8. PALONOSETRON. [Concomitant]
     Active Substance: PALONOSETRON HYDROCHLORIDE
     Indication: PROPHYLAXIS
     Dosage: 0.25 G, SINGLE(ONCE)
     Route: 040

REACTIONS (1)
  - Gastrointestinal disorder [Not Recovered/Not Resolved]

NARRATIVE: CASE EVENT DATE: 20200620
